FAERS Safety Report 8761605 (Version 2)
Quarter: 2012Q4

REPORT INFORMATION
  Report Type: Spontaneous
  Country: DE (occurrence: None)
  Receive Date: 20120821
  Receipt Date: 20120829
  Transmission Date: 20130627
  Serious: Yes (Other)
  Sender: FDA-Public Use
  Company Number: GER/GER/12/0025428

PATIENT
  Age: 36 Year
  Sex: Female
  Weight: 104 kg

DRUGS (5)
  1. RAMIPRIL (RAMIPRIL) [Suspect]
     Indication: HYPERTENSION
     Route: 048
  2. RAMIPRIL (RAMIPRIL) [Suspect]
     Indication: HYPERTENSION
     Route: 048
  3. NEBILET [Suspect]
     Route: 048
  4. L-THYROX 50 (LEVOTHYROXINE SODIUM) [Concomitant]
  5. VITAVERLAN (FOLIC ACID) [Concomitant]

REACTIONS (5)
  - Gestational diabetes [None]
  - Oligohydramnios [None]
  - Premature rupture of membranes [None]
  - Caesarean section [None]
  - Exposure during pregnancy [None]
